FAERS Safety Report 7997158-4 (Version None)
Quarter: 2011Q4

REPORT INFORMATION
  Report Type: 
  Country: None (occurrence: None)
  Receive Date: 20111221
  Receipt Date: 20111208
  Transmission Date: 20120403
  Serious: No
  Sender: FDA-Public Use
  Company Number: RO-SANOFI-AVENTIS-2011SA080502

PATIENT
  Age: 34 Year
  Sex: Female

DRUGS (5)
  1. ACETYLSALICYLIC ACID SRT [Concomitant]
     Indication: RHEUMATOID ARTHRITIS
     Route: 048
     Dates: start: 20081027
  2. DICLOFENAC [Concomitant]
     Route: 048
     Dates: start: 20080101
  3. ARAVA [Suspect]
     Indication: RHEUMATOID ARTHRITIS
     Route: 048
     Dates: start: 20090525, end: 20111107
  4. METHOTREXATE [Concomitant]
     Route: 048
     Dates: start: 20070604
  5. OMEPRAZOLE [Concomitant]
     Indication: PROPHYLAXIS
     Route: 048
     Dates: start: 20090101

REACTIONS (1)
  - MATERNAL EXPOSURE DURING PREGNANCY [None]
